FAERS Safety Report 21957643 (Version 4)
Quarter: 2024Q2

REPORT INFORMATION
  Report Type: Report from Study
  Country: PT (occurrence: PT)
  Receive Date: 20230206
  Receipt Date: 20240405
  Transmission Date: 20240716
  Serious: Yes (Other)
  Sender: FDA-Public Use
  Company Number: PT-ROCHE-3252397

PATIENT
  Age: 76 Year
  Sex: Female

DRUGS (43)
  1. ZOLEDRONIC ACID [Suspect]
     Active Substance: ZOLEDRONIC ACID
     Indication: HER2 positive breast cancer
     Dosage: MOST RECENT DOSE PRIOR TO THE EVENT: 2/MAR/2022
     Route: 042
     Dates: start: 20170227
  2. TAMOXIFEN [Suspect]
     Active Substance: TAMOXIFEN
     Indication: HER2 positive breast cancer
     Route: 048
     Dates: start: 20170629
  3. FAM-TRASTUZUMAB DERUXTECAN-NXKI [Suspect]
     Active Substance: FAM-TRASTUZUMAB DERUXTECAN-NXKI
     Indication: HER2 positive breast cancer
     Route: 042
     Dates: start: 20211013
  4. LOPERAMIDE [Concomitant]
     Active Substance: LOPERAMIDE
     Indication: Diarrhoea
     Route: 065
  5. ACETAMINOPHEN [Concomitant]
     Active Substance: ACETAMINOPHEN
     Indication: Pain
     Route: 065
  6. ACETAMINOPHEN [Concomitant]
     Active Substance: ACETAMINOPHEN
     Indication: Pain
     Route: 065
  7. POLYETHYLENE GLYCOLS [Concomitant]
     Active Substance: POLYETHYLENE GLYCOLS
     Indication: Constipation
     Dates: start: 20211116
  8. METOCLOPRAMIDE [Concomitant]
     Active Substance: METOCLOPRAMIDE
     Indication: Product used for unknown indication
     Route: 065
  9. METFORMIN [Concomitant]
     Active Substance: METFORMIN HYDROCHLORIDE
     Indication: Product used for unknown indication
     Route: 065
     Dates: start: 2016
  10. ADO-TRASTUZUMAB EMTANSINE [Suspect]
     Active Substance: ADO-TRASTUZUMAB EMTANSINE
     Indication: HER2 positive breast cancer
     Dosage: MOST RECENT DOSE PRIOR TO AE /JAN/2020
     Route: 042
     Dates: start: 20180917
  11. XARELTO [Concomitant]
     Active Substance: RIVAROXABAN
     Indication: Product used for unknown indication
     Route: 065
     Dates: start: 20161228
  12. MAGNESIUM [Concomitant]
     Active Substance: MAGNESIUM
     Indication: Hypomagnesaemia
     Route: 065
     Dates: start: 20180220
  13. PERTUZUMAB [Suspect]
     Active Substance: PERTUZUMAB
     Indication: HER2 positive breast cancer
     Route: 042
     Dates: start: 20170227, end: 20170927
  14. PERTUZUMAB [Suspect]
     Active Substance: PERTUZUMAB
     Indication: HER2 positive breast cancer
     Dosage: DOSAGE TEXT: MOST RECENT DOSE PRIOR TO AE 13/AUG/2018
     Route: 042
     Dates: start: 20171108
  15. VALACYCLOVIR HYDROCHLORIDE [Concomitant]
     Active Substance: VALACYCLOVIR HYDROCHLORIDE
     Indication: Product used for unknown indication
     Route: 065
     Dates: start: 20180328, end: 20180418
  16. TRASTUZUMAB [Suspect]
     Active Substance: TRASTUZUMAB
     Indication: HER2 positive breast cancer
     Dosage: DOSAGE TEXT: MOST RECENT DOSE PRIOR TO AE 03/SEP/2018
     Route: 042
     Dates: start: 20171108
  17. TRASTUZUMAB [Suspect]
     Active Substance: TRASTUZUMAB
     Indication: HER2 positive breast cancer
     Route: 042
     Dates: start: 20170227, end: 20170927
  18. SIMVASTATIN [Concomitant]
     Active Substance: SIMVASTATIN
     Indication: Product used for unknown indication
     Dosage: ONGOING = CHECKED
     Route: 065
     Dates: start: 20160615
  19. NOLOTIL [Concomitant]
     Indication: Product used for unknown indication
     Route: 065
  20. DOCETAXEL [Suspect]
     Active Substance: DOCETAXEL\DOCETAXEL ANHYDROUS
     Indication: HER2 positive breast cancer
     Dosage: MOST RECENT DOSE PRIOR TO AE 29/MAY/2017
     Route: 042
     Dates: start: 20170227
  21. AMOXICILLIN [Concomitant]
     Active Substance: AMOXICILLIN
     Indication: Product used for unknown indication
     Route: 065
     Dates: start: 202101
  22. ARCOXIA [Concomitant]
     Active Substance: ETORICOXIB
     Indication: Product used for unknown indication
     Route: 065
  23. TRAMADOL [Concomitant]
     Active Substance: TRAMADOL\TRAMADOL HYDROCHLORIDE
     Indication: Pain
     Route: 065
  24. FLUOXETINE HYDROCHLORIDE [Concomitant]
     Active Substance: FLUOXETINE HYDROCHLORIDE
     Indication: Depression
     Route: 065
     Dates: start: 20170926
  25. ESOMEPRAZOLE [Concomitant]
     Active Substance: ESOMEPRAZOLE
     Indication: Product used for unknown indication
     Route: 065
     Dates: start: 20200324
  26. POTASSIUM [Concomitant]
     Active Substance: POTASSIUM
     Indication: Hypokalaemia
     Route: 065
  27. CALCIUM\CHOLECALCIFEROL [Concomitant]
     Active Substance: CALCIUM\CHOLECALCIFEROL
     Indication: Product used for unknown indication
     Route: 065
  28. OMEPRAZOLE [Concomitant]
     Active Substance: OMEPRAZOLE
     Indication: Product used for unknown indication
     Route: 065
     Dates: start: 2016
  29. FUSIDIC ACID [Concomitant]
     Active Substance: FUSIDIC ACID
     Indication: Product used for unknown indication
     Route: 065
     Dates: start: 20200110
  30. ETHYL LOFLAZEPATE [Concomitant]
     Active Substance: ETHYL LOFLAZEPATE
     Indication: Product used for unknown indication
     Route: 065
     Dates: start: 2016
  31. BILASTINE [Concomitant]
     Active Substance: BILASTINE
     Indication: Product used for unknown indication
     Route: 065
     Dates: start: 20180418
  32. ZALDIAR [Concomitant]
     Active Substance: ACETAMINOPHEN\TRAMADOL HYDROCHLORIDE
     Indication: Product used for unknown indication
     Route: 065
     Dates: start: 20190326
  33. ANASTROZOLE [Suspect]
     Active Substance: ANASTROZOLE
     Indication: HER2 positive breast cancer
     Dosage: MOST RECENT DOSE PRIOR TO AE /OCT/2016
     Route: 048
     Dates: start: 201606, end: 201610
  34. OFLOXACIN [Concomitant]
     Active Substance: OFLOXACIN
     Indication: Product used for unknown indication
     Route: 065
     Dates: start: 20170529
  35. BACTRIM [Concomitant]
     Active Substance: SULFAMETHOXAZOLE\TRIMETHOPRIM
     Indication: Urinary tract infection
     Route: 065
     Dates: start: 201802, end: 201803
  36. CODIPRONT [CODEINE;PHENYLTOLOXAMINE] [Concomitant]
     Indication: Cough
     Route: 065
  37. CAPECITABINE [Suspect]
     Active Substance: CAPECITABINE
     Indication: HER2 positive breast cancer
     Route: 048
     Dates: start: 20200331, end: 20200602
  38. CAPECITABINE [Suspect]
     Active Substance: CAPECITABINE
     Indication: HER2 positive breast cancer
     Dosage: MOST RECENT DOSE PRIOR TO THE EVENT: 16/JUN/2020
     Route: 048
     Dates: start: 20200211, end: 20200303
  39. CAPECITABINE [Suspect]
     Active Substance: CAPECITABINE
     Indication: HER2 positive breast cancer
     Dosage: MOST RECENT DOSE PRIOR TO AE 31/AUG/2021
     Route: 048
     Dates: start: 20200616
  40. FOSFOMYCIN [Concomitant]
     Active Substance: FOSFOMYCIN
     Indication: Urinary tract infection
     Route: 065
     Dates: start: 20180418
  41. BISOPROLOL [Concomitant]
     Active Substance: BISOPROLOL\BISOPROLOL FUMARATE
     Indication: Product used for unknown indication
     Route: 065
     Dates: start: 2016
  42. LAPATINIB [Suspect]
     Active Substance: LAPATINIB
     Indication: HER2 positive breast cancer
     Dosage: MOST RECENT DOSE PRIOR TO AE 31/MAR/2020
     Route: 048
     Dates: start: 20200331
  43. LAPATINIB [Suspect]
     Active Substance: LAPATINIB
     Indication: HER2 positive breast cancer
     Route: 048
     Dates: start: 20200211, end: 20200303

REACTIONS (3)
  - Pneumonitis [Recovered/Resolved]
  - Anaemia [Recovered/Resolved]
  - Neutropenia [Recovered/Resolved]

NARRATIVE: CASE EVENT DATE: 20211223
